FAERS Safety Report 17973357 (Version 1)
Quarter: 2020Q3

REPORT INFORMATION
  Report Type: Spontaneous
  Country: US (occurrence: US)
  Receive Date: 20200702
  Receipt Date: 20200702
  Transmission Date: 20201103
  Serious: Yes (Other)
  Sender: FDA-Public Use
  Company Number: NVSC2020US181648

PATIENT
  Age: 80 Year
  Sex: Female

DRUGS (2)
  1. PREDNISOLONE ACETATE. [Suspect]
     Active Substance: PREDNISOLONE ACETATE
     Indication: CYSTOID MACULAR OEDEMA
     Dosage: UNK, QID, IN BOTH EYES
     Route: 065
  2. NEPAFENAC [Suspect]
     Active Substance: NEPAFENAC
     Indication: CYSTOID MACULAR OEDEMA
     Dosage: UNK, QID, IN BOTH EYES
     Route: 065

REACTIONS (2)
  - Infectious crystalline keratopathy [Recovered/Resolved]
  - Product use in unapproved indication [Unknown]
